FAERS Safety Report 21074165 (Version 1)
Quarter: 2022Q3

REPORT INFORMATION
  Report Type: Spontaneous
  Country: PT (occurrence: PT)
  Receive Date: 20220713
  Receipt Date: 20220713
  Transmission Date: 20221026
  Serious: Yes (Other)
  Sender: FDA-Public Use
  Company Number: None

PATIENT
  Age: 86 Year
  Sex: Female

DRUGS (6)
  1. BROMFENAC SODIUM [Suspect]
     Active Substance: BROMFENAC SODIUM
     Indication: Glaucoma surgery
     Dosage: 3XDIA
     Route: 050
     Dates: start: 20220607
  2. LATANOPROST\TIMOLOL MALEATE [Suspect]
     Active Substance: LATANOPROST\TIMOLOL MALEATE
     Indication: Glaucoma surgery
     Dosage: 1XDIA, VIA OPHTHALMIC 0.05 MG/ML + 5 MG/ML
     Route: 047
     Dates: start: 20220607, end: 20220623
  3. DEXAMETHASONE\OFLOXACIN [Suspect]
     Active Substance: DEXAMETHASONE\OFLOXACIN
     Indication: Glaucoma surgery
     Dosage: 3XDIA 1 MG/ML + 3 MG/ML
     Route: 050
     Dates: start: 20220607
  4. GLYCOPYRRONIUM\INDACATEROL [Concomitant]
     Active Substance: GLYCOPYRRONIUM\INDACATEROL
     Indication: Chronic obstructive pulmonary disease
     Dosage: 43 ?G + 85 ?G
     Route: 055
  5. FLUTICASONE PROPIONATE [Concomitant]
     Active Substance: FLUTICASONE PROPIONATE
     Indication: Chronic obstructive pulmonary disease
     Route: 055
  6. ALBUTEROL [Concomitant]
     Active Substance: ALBUTEROL
     Indication: Chronic obstructive pulmonary disease
     Route: 055

REACTIONS (5)
  - Dyspnoea [Recovered/Resolved]
  - Deafness unilateral [Recovering/Resolving]
  - Dysgeusia [Recovering/Resolving]
  - Abdominal distension [Recovering/Resolving]
  - Chromaturia [Recovering/Resolving]

NARRATIVE: CASE EVENT DATE: 20220601
